FAERS Safety Report 5529455-6 (Version None)
Quarter: 2007Q4

REPORT INFORMATION
  Report Type: 
  Country: None (occurrence: None)
  Receive Date: 20071129
  Receipt Date: 20071119
  Transmission Date: 20080405
  Serious: Yes (Hospitalization, Other)
  Sender: FDA-Public Use
  Company Number: US-AMGEN-US226222

PATIENT
  Age: 42 Year
  Sex: Female

DRUGS (2)
  1. PROCRIT [Suspect]
     Indication: HIV INFECTION
  2. FERROUS SULFATE TAB [Concomitant]

REACTIONS (4)
  - DRUG INTERACTION POTENTIATION [None]
  - OROPHARYNGEAL CANDIDIASIS [None]
  - PNEUMOCYSTIS JIROVECI PNEUMONIA [None]
  - POLYCYTHAEMIA [None]
